FAERS Safety Report 8198334-0 (Version None)
Quarter: 2012Q1

REPORT INFORMATION
  Report Type: 
  Country: None (occurrence: None)
  Receive Date: 20120309
  Receipt Date: 20120308
  Transmission Date: 20120608
  Serious: Yes (Hospitalization)
  Sender: FDA-Public Use
  Company Number: US-MERCK-1203USA00297

PATIENT
  Age: 72 Year
  Sex: Female

DRUGS (6)
  1. LOVASA [Concomitant]
     Route: 065
  2. TRAZODONE HYDROCHLORIDE [Concomitant]
     Route: 065
  3. ASPIRIN [Concomitant]
     Route: 065
  4. JANUVIA [Suspect]
     Indication: TYPE 2 DIABETES MELLITUS
     Route: 048
     Dates: start: 20060101
  5. VASOTEC [Concomitant]
     Route: 048
  6. CYMBALTA [Concomitant]
     Route: 065

REACTIONS (9)
  - ASTHENIA [None]
  - RESPIRATORY TRACT INFECTION [None]
  - HEADACHE [None]
  - PNEUMONIA [None]
  - FEELING JITTERY [None]
  - ASTHMA [None]
  - FATIGUE [None]
  - DIZZINESS [None]
  - HYPERHIDROSIS [None]
